FAERS Safety Report 6400006-7 (Version None)
Quarter: 2009Q4

REPORT INFORMATION
  Report Type: 
  Country: None (occurrence: None)
  Receive Date: 20091014
  Receipt Date: 20091006
  Transmission Date: 20100525
  Serious: Yes (Other)
  Sender: FDA-Public Use
  Company Number: US-ELI_LILLY_AND_COMPANY-US200905005696

PATIENT
  Sex: Male
  Weight: 111.57 kg

DRUGS (9)
  1. BYETTA [Suspect]
     Indication: TYPE 2 DIABETES MELLITUS
     Dosage: 5 UG, 5/W
     Route: 058
     Dates: start: 20070904, end: 20071017
  2. BYETTA [Suspect]
     Dosage: 10 UG, 5/W
     Dates: start: 20071017, end: 20090522
  3. SYNTHROID [Concomitant]
     Indication: HYPOTHYROIDISM
     Dosage: 0.25 UG, DAILY (1/D)
  4. ZOLOFT [Concomitant]
     Dosage: 50 MG, DAILY (1/D)
  5. ALLEGRA [Concomitant]
     Dosage: 180 MG, UNK
  6. SINGULAIR [Concomitant]
  7. LIPITOR [Concomitant]
     Indication: HYPERLIPIDAEMIA
     Dosage: 20 MG, UNK
  8. LISINOPRIL [Concomitant]
     Indication: HYPERTENSION
     Dosage: 20 MG, UNK
  9. JANUVIA [Concomitant]
     Indication: DIABETES MELLITUS
     Dates: start: 20090526

REACTIONS (3)
  - DRUG DOSE OMISSION [None]
  - PANCREATITIS [None]
  - WEIGHT DECREASED [None]
